FAERS Safety Report 13548193 (Version 1)
Quarter: 2017Q2

REPORT INFORMATION
  Report Type: Spontaneous
  Country: US (occurrence: US)
  Receive Date: 20170516
  Receipt Date: 20170516
  Transmission Date: 20170830
  Serious: No
  Sender: FDA-Public Use
  Company Number: US-JNJFOC-20170312189

PATIENT
  Age: 62 Year
  Sex: Female
  Weight: 49.9 kg

DRUGS (2)
  1. WOMENS ROGAINE UNSCENTED [Suspect]
     Active Substance: MINOXIDIL
     Indication: ALOPECIA
     Dosage: 1/2 CAPFUL ONCE
     Route: 061
     Dates: start: 20170307, end: 20170307
  2. WOMENS ROGAINE UNSCENTED [Suspect]
     Active Substance: MINOXIDIL
     Route: 061

REACTIONS (5)
  - Product use in unapproved indication [Unknown]
  - Pruritus [Unknown]
  - Off label use [Unknown]
  - Skin burning sensation [Unknown]
  - Alopecia [Unknown]

NARRATIVE: CASE EVENT DATE: 20170307
